FAERS Safety Report 4738922-4 (Version None)
Quarter: 2005Q3

REPORT INFORMATION
  Report Type: 
  Country: None (occurrence: None)
  Receive Date: 20050801
  Receipt Date: 20050322
  Transmission Date: 20060218
  Serious: Yes (Death)
  Sender: FDA-Public Use
  Company Number: 213222

PATIENT
  Age: 56 Year
  Sex: Male
  Weight: 88 kg

DRUGS (5)
  1. RITUXAN [Suspect]
     Indication: NON-HODGKIN'S LYMPHOMA
     Dosage: 750 MG, 1/MONTH, INTRAVENOUS
     Route: 042
     Dates: start: 20040519, end: 20040809
  2. CYTOXAN [Concomitant]
  3. VINCRISTINE [Concomitant]
  4. ADRIAMYCIN PFS [Concomitant]
  5. DECADRON [Concomitant]

REACTIONS (2)
  - HEPATITIS B [None]
  - LIVER FUNCTION TEST ABNORMAL [None]
